FAERS Safety Report 10835998 (Version 1)
Quarter: 2015Q1

REPORT INFORMATION
  Report Type: Spontaneous
  Country: GB (occurrence: GB)
  Receive Date: 20150219
  Receipt Date: 20150219
  Transmission Date: 20150721
  Serious: Yes (Hospitalization, Other)
  Sender: FDA-Public Use
  Company Number: GB-BAXTER-2015BAX008017

PATIENT
  Age: 75 Year
  Sex: Male

DRUGS (2)
  1. BICART 1150 [Suspect]
     Active Substance: SODIUM BICARBONATE
     Indication: HAEMODIALYSIS
     Route: 010
     Dates: end: 20150210
  2. SODIUM CHLORIDE 0.9% INTRAVENOUS INFUSION BP [Suspect]
     Active Substance: SODIUM CHLORIDE
     Indication: BLOOD PRESSURE DECREASED
     Route: 042
     Dates: end: 20150210

REACTIONS (4)
  - Chills [Unknown]
  - Pneumonia [Unknown]
  - Body temperature increased [Unknown]
  - Blood pressure decreased [Unknown]

NARRATIVE: CASE EVENT DATE: 20150210
